FAERS Safety Report 25123450 (Version 1)
Quarter: 2025Q1

REPORT INFORMATION
  Report Type: Spontaneous
  Country: ES (occurrence: ES)
  Receive Date: 20250326
  Receipt Date: 20250326
  Transmission Date: 20250409
  Serious: Yes (Death, Other)
  Sender: HETERO
  Company Number: ES-CINFAGATEW-2025000632

PATIENT
  Age: 46 Year
  Sex: Male

DRUGS (1)
  1. FINASTERIDE [Suspect]
     Active Substance: FINASTERIDE
     Indication: Alopecia
     Route: 048

REACTIONS (6)
  - Completed suicide [Fatal]
  - Depressed mood [Fatal]
  - Erectile dysfunction [Unknown]
  - Disturbance in attention [Unknown]
  - Insomnia [Unknown]
  - Off label use [Unknown]

NARRATIVE: CASE EVENT DATE: 20240101
